FAERS Safety Report 10196233 (Version 4)
Quarter: 2014Q2

REPORT INFORMATION
  Report Type: Spontaneous
  Country: CH (occurrence: CH)
  Receive Date: 20140527
  Receipt Date: 20140613
  Transmission Date: 20141212
  Serious: Yes (Other)
  Sender: FDA-Public Use
  Company Number: CH-NOVOPROD-409870

PATIENT
  Age: 70 Year
  Sex: Male
  Weight: 93.4 kg

DRUGS (7)
  1. VICTOZA [Suspect]
     Indication: TYPE 2 DIABETES MELLITUS
     Dosage: 0.6 MG, TID
     Route: 058
     Dates: start: 201402
  2. VICTOZA [Suspect]
     Dosage: 1.2 MG, QD
     Route: 058
     Dates: start: 201402
  3. VICTOZA [Suspect]
     Dosage: 0.6 MG, QD
     Route: 058
     Dates: end: 201404
  4. LANTUS [Concomitant]
     Dosage: 32 U, QD
     Route: 065
  5. METFORMIN [Concomitant]
     Dosage: 1000 MG, BID
     Route: 065
  6. ACETYLSALICYLIC ACID [Concomitant]
     Dosage: 100 MG, QD
     Route: 065
  7. ATACAND [Concomitant]
     Dosage: 16 MG, QD
     Route: 065

REACTIONS (2)
  - Tachycardia [Recovered/Resolved]
  - Inappropriate schedule of drug administration [Unknown]
